FAERS Safety Report 12382998 (Version 1)
Quarter: 2016Q2

REPORT INFORMATION
  Report Type: Other
  Country: GB (occurrence: GB)
  Receive Date: 20160518
  Receipt Date: 20160518
  Transmission Date: 20160815
  Serious: Yes (Other)
  Sender: FDA-Public Use
  Company Number: GB-MYLANLABS-2016M1019646

PATIENT

DRUGS (1)
  1. SILDENAFIL. [Suspect]
     Active Substance: SILDENAFIL
     Dosage: 40 MG, TOTAL (WITH IN 48 HR)
     Route: 048

REACTIONS (4)
  - Hypertension [Unknown]
  - Anxiety [Unknown]
  - Cardiac disorder [Unknown]
  - Paraesthesia [Unknown]
